FAERS Safety Report 21746711 (Version 8)
Quarter: 2025Q1

REPORT INFORMATION
  Report Type: Report from Study
  Country: CA (occurrence: CA)
  Receive Date: 20221219
  Receipt Date: 20250325
  Transmission Date: 20250408
  Serious: Yes (Other)
  Sender: TAKEDA
  Company Number: CA-TAKEDA-2022TUS096812

PATIENT
  Age: 76 Year
  Sex: Male

DRUGS (18)
  1. VEDOLIZUMAB [Suspect]
     Active Substance: VEDOLIZUMAB
     Indication: Crohn^s disease
  2. VEDOLIZUMAB [Suspect]
     Active Substance: VEDOLIZUMAB
     Indication: Crohn^s disease
     Dosage: 108 MILLIGRAM, Q2WEEKS
     Dates: start: 20221205
  3. VEDOLIZUMAB [Suspect]
     Active Substance: VEDOLIZUMAB
     Dosage: 108 MILLIGRAM, 1/WEEK
     Dates: start: 20230308
  4. SOLU-MEDROL [Concomitant]
     Active Substance: METHYLPREDNISOLONE SODIUM SUCCINATE
  5. CALCIUM [Concomitant]
     Active Substance: CALCIUM
  6. ENOXAPARIN [Concomitant]
     Active Substance: ENOXAPARIN
     Dosage: UNK UNK, QD
  7. HYDROCORTISONE [Concomitant]
     Active Substance: HYDROCORTISONE
     Route: 061
  8. BISOPROLOL [Concomitant]
     Active Substance: BISOPROLOL
  9. MAGNESIUM OXIDE [Concomitant]
     Active Substance: MAGNESIUM OXIDE
  10. VITAMIN D3 [Concomitant]
     Active Substance: CHOLECALCIFEROL
  11. TYLENOL [Concomitant]
     Active Substance: ACETAMINOPHEN
  12. BISACODYL [Concomitant]
     Active Substance: BISACODYL
  13. GRAVOL [Concomitant]
     Active Substance: DIMENHYDRINATE
  14. NICARDIPINE [Concomitant]
     Active Substance: NICARDIPINE
  15. ZINC [Concomitant]
     Active Substance: ZINC
  16. VITAMIN C [Concomitant]
     Active Substance: ASCORBIC ACID
  17. POLYETHYLENE GLYCOL 3350 [Concomitant]
     Active Substance: POLYETHYLENE GLYCOL 3350
  18. SENOKOT [Concomitant]
     Active Substance: SENNOSIDES

REACTIONS (8)
  - Crohn^s disease [Unknown]
  - Large intestinal stenosis [Unknown]
  - Anaemia [Unknown]
  - Rectal polyp [Unknown]
  - Off label use [Unknown]
  - Eye pruritus [Not Recovered/Not Resolved]
  - Constipation [Not Recovered/Not Resolved]
  - Faeces soft [Unknown]

NARRATIVE: CASE EVENT DATE: 20230308
